FAERS Safety Report 8967535 (Version 1)
Quarter: 2012Q4

REPORT INFORMATION
  Report Type: 
  Country: US (occurrence: US)
  Receive Date: 20121217
  Receipt Date: 20121217
  Transmission Date: 20130627
  Serious: No
  Sender: FDA-Public Use
  Company Number: US-BIOGENIDEC-2012BI059707

PATIENT
  Sex: Female

DRUGS (7)
  1. TYSABRI [Suspect]
     Indication: MULTIPLE SCLEROSIS
     Route: 042
     Dates: start: 20120127, end: 20120810
  2. AVONEX [Concomitant]
     Indication: MULTIPLE SCLEROSIS
     Route: 030
     Dates: start: 20121116
  3. CYMBALTA [Concomitant]
     Indication: DEPRESSION
  4. ABILIFY [Concomitant]
     Indication: DEPRESSION
  5. MORPHINE SHORT ACTING [Concomitant]
     Indication: PAIN
     Route: 048
     Dates: start: 2010
  6. MORPHINE LONG ACTING [Concomitant]
     Indication: PAIN
     Route: 048
     Dates: start: 2010, end: 20121116
  7. MORPHINE LONG ACTING [Concomitant]
     Indication: PAIN
     Route: 048
     Dates: start: 20121116

REACTIONS (1)
  - Pain [Not Recovered/Not Resolved]
